FAERS Safety Report 9178929 (Version 1)
Quarter: 2012Q4

REPORT INFORMATION
  Report Type: Report from Study
  Country: US (occurrence: US)
  Receive Date: 20121029
  Receipt Date: 20121029
  Transmission Date: 20130627
  Serious: Yes (Hospitalization)
  Sender: FDA-Public Use
  Company Number: US-CELGENEUS-163-21880-12090190

PATIENT
  Age: 82 None
  Sex: Male
  Weight: 75.4 kg

DRUGS (23)
  1. REVLIMID [Suspect]
     Indication: ACUTE MYELOID LEUKAEMIA
     Dosage: 10 Milligram
     Route: 048
     Dates: start: 20120828, end: 20120903
  2. CYTARABINE [Suspect]
     Indication: ACUTE MYELOID LEUKAEMIA
     Dosage: 1.5 g/m^2
     Route: 041
     Dates: start: 20120823, end: 20120827
  3. ACYCLOVIR [Concomitant]
     Indication: INFECTION PROPHYLAXIS
     Dosage: 800 Milligram
     Route: 048
     Dates: start: 20120831, end: 20120904
  4. CHLORHEXIDINE [Concomitant]
     Indication: PROPHYLAXIS
     Dosage: 15 milliliter
     Dates: start: 20120901, end: 20120903
  5. CLOTRIMAZOLE [Concomitant]
     Indication: PROPHYLAXIS
     Dosage: 10 Milligram
     Route: 048
     Dates: start: 20120831, end: 20120904
  6. DEXAMETHASONE [Concomitant]
     Indication: PROPHYLAXIS
     Dosage: 2 Drops
     Route: 047
     Dates: start: 20120901, end: 20120903
  7. DILTIAZEM [Concomitant]
     Indication: ATRIAL FIBRILLATION
     Dosage: 60 Milligram
     Route: 048
     Dates: start: 20120831, end: 20120904
  8. DIPHENHYDRAMINE [Concomitant]
     Indication: PREMEDICATION
     Dosage: 25 Milligram
     Route: 041
     Dates: start: 20120831
  9. FUROSEMIDE [Concomitant]
     Indication: DIURESIS
     Dosage: 20 Milligram
     Route: 041
     Dates: start: 20120902
  10. LEVOTHYROXINE [Concomitant]
     Indication: HYPOTHYROIDISM
     Dosage: 75 Microgram
     Route: 048
     Dates: start: 20120901, end: 20120904
  11. LIDOCAINE [Concomitant]
     Indication: RIB PAIN
     Dosage: 2 patches
     Route: 061
     Dates: start: 20120831, end: 20120903
  12. MAGNESIUM SULFATE [Concomitant]
     Indication: SUPPLEMENTATION THERAPY
     Dosage: 2 grams at 50 ml/hr
     Route: 041
     Dates: start: 20120901
  13. MEROPENEM [Concomitant]
     Indication: INFECTION PROPHYLAXIS
     Dosage: 1 Gram
     Route: 041
     Dates: start: 20120901
  14. OXYCODONE [Concomitant]
     Indication: RIB PAIN
     Dosage: 5 Milligram
     Route: 048
     Dates: start: 20120904
  15. PHYTONADIONE [Concomitant]
     Indication: BLEEDING PROPHYLAXIS
     Dosage: 10 Milligram
     Route: 048
     Dates: start: 20120903
  16. PIPERACILLIN/TAZOBACTAM [Concomitant]
     Indication: INFECTION PROPHYLAXIS
     Dosage: 4.5 Gram
     Route: 041
     Dates: start: 20120831, end: 20120903
  17. PLATELETS [Concomitant]
     Indication: TRANSFUSION
     Route: 041
     Dates: start: 20120901, end: 20120904
  18. POTASSIUM CHLORIDE ER [Concomitant]
     Indication: SUPPLEMENTATION THERAPY
     Dosage: 80 Milliequivalents
     Route: 048
  19. POTASSIUM CHLORIDE ER [Concomitant]
     Dosage: 40 Milliequivalents
     Route: 041
     Dates: start: 20120901, end: 20120903
  20. RED BLOOD CELLS [Concomitant]
     Indication: TRANSFUSION
     Route: 065
     Dates: start: 20120902
  21. SODIUM CHLORIDE [Concomitant]
     Indication: FLUID REPLACEMENT NOS
     Dosage: 1000 milliliter
     Route: 065
     Dates: start: 20120904
  22. TERAZOSIN [Concomitant]
     Indication: ENLARGED PROSTATE
     Dosage: 7 Milligram
     Route: 048
     Dates: start: 20120831, end: 20120903
  23. VORICONAZOLE [Concomitant]
     Indication: INFECTION PROPHYLAXIS
     Dosage: 300 Milligram
     Route: 048
     Dates: start: 20120831, end: 20120904

REACTIONS (1)
  - Ileus [Recovered/Resolved]
